FAERS Safety Report 5027594-X (Version None)
Quarter: 2006Q2

REPORT INFORMATION
  Report Type: 
  Country: None (occurrence: None)
  Receive Date: 20060428
  Receipt Date: 20060120
  Transmission Date: 20061013
  Serious: No
  Sender: FDA-Public Use
  Company Number: COT_0352_2006

PATIENT
  Age: 43 Year
  Sex: Female
  Weight: 68.0396 kg

DRUGS (5)
  1. VENTAVIS [Suspect]
     Indication: PULMONARY HYPERTENSION
     Dosage: 2.5 MCG 8XD IH
     Dates: start: 20051215, end: 20051216
  2. VENTAVIS [Suspect]
     Indication: PULMONARY HYPERTENSION
     Dosage: 5 MCG ONCE IH
     Dates: start: 20051216, end: 20051216
  3. VENTAVIS [Suspect]
     Indication: PULMONARY HYPERTENSION
     Dosage: 2.5 MCG 8XD IH
     Dates: start: 20051216, end: 20051216
  4. SILDENAFIL [Suspect]
     Indication: PULMONARY HYPERTENSION
     Dates: start: 20051209, end: 20051222
  5. MORPHINE [Suspect]
     Indication: PAIN
     Dates: start: 20051201

REACTIONS (11)
  - ASTHENIA [None]
  - BACK PAIN [None]
  - CONSTIPATION [None]
  - DIZZINESS [None]
  - FATIGUE [None]
  - HEADACHE [None]
  - MYALGIA [None]
  - NAUSEA [None]
  - PAIN IN EXTREMITY [None]
  - VAGINAL HAEMORRHAGE [None]
  - VISION BLURRED [None]
